FAERS Safety Report 15908467 (Version 2)
Quarter: 2019Q1

REPORT INFORMATION
  Report Type: Spontaneous
  Country: US (occurrence: US)
  Receive Date: 20190204
  Receipt Date: 20190204
  Transmission Date: 20190417
  Serious: Yes (Death)
  Sender: FDA-Public Use
  Company Number: US-VIFOR (INTERNATIONAL) INC.-VIT-2019-00687

PATIENT
  Sex: Male

DRUGS (6)
  1. ONDANSETRON HCL [Concomitant]
     Active Substance: ONDANSETRON HYDROCHLORIDE
  2. PROSOURCE [Concomitant]
     Active Substance: DIETARY SUPPLEMENT
  3. MELATONIN [Concomitant]
     Active Substance: MELATONIN
  4. NORMAL SALINE FLUSH [Concomitant]
     Active Substance: SODIUM CHLORIDE
  5. PLAVIX [Concomitant]
     Active Substance: CLOPIDOGREL BISULFATE
  6. VELTASSA [Suspect]
     Active Substance: PATIROMER
     Indication: HYPERKALAEMIA
     Route: 065

REACTIONS (1)
  - Death [Fatal]
